FAERS Safety Report 9155868 (Version 1)
Quarter: 2013Q1

REPORT INFORMATION
  Report Type: Spontaneous
  Country: GB (occurrence: GB)
  Receive Date: 20130311
  Receipt Date: 20130311
  Transmission Date: 20140127
  Serious: Yes (Other)
  Sender: FDA-Public Use
  Company Number: PHHY2013GB021142

PATIENT
  Age: 10 Year
  Sex: Male
  Weight: 40 kg

DRUGS (1)
  1. AZITHROMYCIN [Suspect]
     Indication: LOWER RESPIRATORY TRACT INFECTION
     Route: 048
     Dates: start: 20111101

REACTIONS (2)
  - Tooth discolouration [Not Recovered/Not Resolved]
  - Headache [Unknown]
